FAERS Safety Report 15262019 (Version 1)
Quarter: 2018Q3

REPORT INFORMATION
  Report Type: Spontaneous
  Country: JP (occurrence: JP)
  Receive Date: 20180809
  Receipt Date: 20180809
  Transmission Date: 20181010
  Serious: Yes (Other)
  Sender: FDA-Public Use
  Company Number: JP-SA-2018SA205024

PATIENT
  Sex: Male

DRUGS (1)
  1. TAXOTERE [Suspect]
     Active Substance: DOCETAXEL
     Indication: PROSTATIC ABSCESS
     Dosage: UNK UNK, QM
     Route: 041
     Dates: start: 201801, end: 201806

REACTIONS (4)
  - Alopecia [Unknown]
  - Dysgeusia [Unknown]
  - Nail disorder [Unknown]
  - Tongue paralysis [Unknown]
